FAERS Safety Report 11289416 (Version 5)
Quarter: 2016Q1

REPORT INFORMATION
  Report Type: Spontaneous
  Country: JP (occurrence: JP)
  Receive Date: 20150721
  Receipt Date: 20160114
  Transmission Date: 20160525
  Serious: Yes (Hospitalization, Other)
  Sender: FDA-Public Use
  Company Number: JP-GILEAD-2015-0164081

PATIENT
  Age: 65 Year
  Sex: Male

DRUGS (1)
  1. HEPSERA [Suspect]
     Active Substance: ADEFOVIR DIPIVOXIL
     Indication: HEPATITIS B
     Route: 048

REACTIONS (9)
  - Arthralgia [Recovering/Resolving]
  - Femoral neck fracture [Recovering/Resolving]
  - Osteomalacia [Recovering/Resolving]
  - Blood phosphorus decreased [Recovering/Resolving]
  - Gait disturbance [Unknown]
  - Fanconi syndrome acquired [Recovering/Resolving]
  - Fracture [Unknown]
  - Hypophosphataemia [Recovering/Resolving]
  - Fall [Unknown]
